FAERS Safety Report 20644368 (Version 1)
Quarter: 2022Q1

REPORT INFORMATION
  Report Type: Report from Study
  Country: CA (occurrence: CA)
  Receive Date: 20220328
  Receipt Date: 20220328
  Transmission Date: 20220424
  Serious: Yes (Hospitalization)
  Sender: FDA-Public Use
  Company Number: CA-BEIGENE, LTD-BGN-2021-006065

PATIENT

DRUGS (7)
  1. BRUKINSA [Interacting]
     Active Substance: ZANUBRUTINIB
     Indication: Mantle cell lymphoma
     Dosage: 320 MILLIGRAM, QD
     Route: 048
     Dates: start: 20211108
  2. BRUKINSA [Interacting]
     Active Substance: ZANUBRUTINIB
     Dosage: 80 MILLIGRAM, BID
     Route: 048
     Dates: start: 20211108
  3. BRUKINSA [Interacting]
     Active Substance: ZANUBRUTINIB
     Dosage: 320 MILLIGRAM, QD
     Route: 048
     Dates: start: 20211108
  4. APIXABAN [Concomitant]
     Active Substance: APIXABAN
  5. DEXAMETHASONE [Concomitant]
     Active Substance: DEXAMETHASONE
     Dosage: UNK
     Dates: end: 20211115
  6. FLUCONAZOLE [Interacting]
     Active Substance: FLUCONAZOLE
  7. VENCLEXTA [Concomitant]
     Active Substance: VENETOCLAX

REACTIONS (6)
  - Influenza like illness [Unknown]
  - Asthenia [Unknown]
  - Blood magnesium decreased [Unknown]
  - Feeling abnormal [Unknown]
  - Drug interaction [Unknown]
  - Blood glucose increased [Unknown]

NARRATIVE: CASE EVENT DATE: 20211115
